FAERS Safety Report 9595446 (Version 2)
Quarter: 2016Q3

REPORT INFORMATION
  Report Type: Spontaneous
  Country: US (occurrence: US)
  Receive Date: 20131004
  Receipt Date: 20160830
  Transmission Date: 20161109
  Serious: No
  Sender: FDA-Public Use
  Company Number: US-RANBAXY-2013US-73593

PATIENT
  Age: 32 Year
  Sex: Male

DRUGS (4)
  1. LORATADINE. [Concomitant]
     Active Substance: LORATADINE
     Indication: HYPERSENSITIVITY
     Dosage: 10 MG
     Route: 065
  2. LORATADINE. [Concomitant]
     Active Substance: LORATADINE
     Indication: NASAL CONGESTION
  3. PSEUDOEPHEDRINE [Suspect]
     Active Substance: PSEUDOEPHEDRINE
     Indication: HYPERSENSITIVITY
     Dosage: 120 MG, QD
     Route: 065
  4. PSEUDOEPHEDRINE [Suspect]
     Active Substance: PSEUDOEPHEDRINE
     Indication: NASAL CONGESTION

REACTIONS (1)
  - Therapeutic response unexpected [Unknown]
